FAERS Safety Report 11281000 (Version 2)
Quarter: 2015Q3

REPORT INFORMATION
  Report Type: Report from Study
  Country: US (occurrence: US)
  Receive Date: 20150717
  Receipt Date: 20150811
  Transmission Date: 20151125
  Serious: Yes (Other)
  Sender: FDA-Public Use
  Company Number: US-BAYER-2015-368002

PATIENT
  Age: 67 Year
  Sex: Male

DRUGS (2)
  1. STIVARGA [Suspect]
     Active Substance: REGORAFENIB
     Indication: COLORECTAL CANCER METASTATIC
     Dosage: 40 MG, TID
     Route: 048
     Dates: start: 20150623
  2. STIVARGA [Suspect]
     Active Substance: REGORAFENIB
     Indication: COLORECTAL CANCER METASTATIC
     Dosage: 120 MG, QD
     Route: 048
     Dates: end: 201507

REACTIONS (13)
  - Radiotherapy [None]
  - Nocturia [None]
  - Fatigue [Not Recovered/Not Resolved]
  - Headache [None]
  - Weight decreased [None]
  - Cough [None]
  - Decreased appetite [Not Recovered/Not Resolved]
  - International normalised ratio abnormal [None]
  - Heart rate abnormal [None]
  - Pain in extremity [None]
  - Chest pain [None]
  - Product use issue [None]
  - Renal pain [None]

NARRATIVE: CASE EVENT DATE: 201506
